FAERS Safety Report 17976937 (Version 1)
Quarter: 2020Q3

REPORT INFORMATION
  Report Type: Spontaneous
  Country: US (occurrence: US)
  Receive Date: 20200702
  Receipt Date: 20200702
  Transmission Date: 20201103
  Serious: Yes (Other)
  Sender: FDA-Public Use
  Company Number: US-ASTRAZENECA-2020SE82997

PATIENT
  Age: 946 Month
  Sex: Female
  Weight: 99.8 kg

DRUGS (2)
  1. SYMBICORT [Suspect]
     Active Substance: BUDESONIDE\FORMOTEROL FUMARATE DIHYDRATE
     Indication: CHRONIC OBSTRUCTIVE PULMONARY DISEASE
     Dosage: 60/4.5MCG INTERMITTENT INTERMITTENT
     Route: 055
     Dates: start: 20191029
  2. TUDORZA [Concomitant]
     Active Substance: ACLIDINIUM BROMIDE

REACTIONS (4)
  - Expired device used [Unknown]
  - Suspected COVID-19 [Unknown]
  - Quarantine [Unknown]
  - Device use issue [Unknown]

NARRATIVE: CASE EVENT DATE: 201901
